FAERS Safety Report 25581658 (Version 2)
Quarter: 2025Q3

REPORT INFORMATION
  Report Type: Spontaneous
  Country: JP (occurrence: JP)
  Receive Date: 20250719
  Receipt Date: 20250821
  Transmission Date: 20251021
  Serious: Yes (Other)
  Sender: RANBAXY
  Company Number: JP-SUN PHARMACEUTICAL INDUSTRIES LTD-2025R1-517594

PATIENT
  Age: 43 Year
  Sex: Female

DRUGS (5)
  1. PREDNISOLONE [Suspect]
     Active Substance: PREDNISOLONE
     Indication: Eosinophilic cellulitis
     Dosage: 9 MILLIGRAM, DAILY (1-20ME/DAY)
     Route: 048
     Dates: start: 20201002, end: 20240410
  2. INDOMETHACIN [Suspect]
     Active Substance: INDOMETHACIN
     Indication: Eosinophilic cellulitis
     Route: 048
  3. METHOTREXATE [Suspect]
     Active Substance: METHOTREXATE
     Indication: Eosinophilic cellulitis
     Route: 048
  4. TRIAMCINOLONE [Suspect]
     Active Substance: TRIAMCINOLONE
     Indication: Eosinophilic cellulitis
     Route: 023
  5. MYCOPHENOLATE MOFETIL [Suspect]
     Active Substance: MYCOPHENOLATE MOFETIL
     Indication: Eosinophilic cellulitis
     Dosage: 1000 MILLIGRAM, DAILY
     Route: 065
     Dates: start: 20221228, end: 20240710

REACTIONS (1)
  - Drug ineffective [Unknown]

NARRATIVE: CASE EVENT DATE: 20200901
